FAERS Safety Report 18973181 (Version 1)
Quarter: 2021Q1

REPORT INFORMATION
  Report Type: Spontaneous
  Country: CA (occurrence: CA)
  Receive Date: 20210305
  Receipt Date: 20210305
  Transmission Date: 20210420
  Serious: Yes (Other)
  Sender: FDA-Public Use
  Company Number: CA-PFIZER INC-2021199721

PATIENT
  Age: 67 Year
  Sex: Female

DRUGS (2)
  1. RUXIENCE [Suspect]
     Active Substance: RITUXIMAB-PVVR
     Indication: RHEUMATOID ARTHRITIS
     Dosage: 1000 MG, DAY 1 AND DAY 15
     Route: 042
     Dates: start: 20210219
  2. LAMIVUDINE. [Concomitant]
     Active Substance: LAMIVUDINE
     Dosage: 1 DF
     Route: 065

REACTIONS (8)
  - Asthenia [Unknown]
  - Blood pressure fluctuation [Unknown]
  - Chest discomfort [Unknown]
  - Heart rate increased [Unknown]
  - Off label use [Unknown]
  - Blood pressure increased [Unknown]
  - Throat irritation [Recovering/Resolving]
  - Intentional product use issue [Unknown]

NARRATIVE: CASE EVENT DATE: 20210219
